FAERS Safety Report 22651565 (Version 1)
Quarter: 2023Q2

REPORT INFORMATION
  Report Type: Spontaneous
  Country: US (occurrence: US)
  Receive Date: 20230628
  Receipt Date: 20230628
  Transmission Date: 20230721
  Serious: Yes (Life-Threatening, Hospitalization, Other)
  Sender: FDA-Public Use
  Company Number: US-BRISTOL-MYERS SQUIBB COMPANY-2023-089811

PATIENT
  Age: 91 Year
  Sex: Male

DRUGS (2)
  1. APIXABAN [Suspect]
     Active Substance: APIXABAN
     Indication: Cerebrovascular accident prophylaxis
     Route: 048
  2. APIXABAN [Suspect]
     Active Substance: APIXABAN
     Indication: Pulmonary embolism
     Dosage: LOWER DOSE
     Route: 048

REACTIONS (6)
  - Anaemia [Unknown]
  - Haematuria [Unknown]
  - Melaena [Unknown]
  - Hypotension [Unknown]
  - Hypovolaemic shock [Unknown]
  - Intentional product use issue [Unknown]
